FAERS Safety Report 13393805 (Version 1)
Quarter: 2017Q1

REPORT INFORMATION
  Report Type: Spontaneous
  Country: US (occurrence: US)
  Receive Date: 20170331
  Receipt Date: 20170331
  Transmission Date: 20170429
  Serious: Yes (Other)
  Sender: FDA-Public Use
  Company Number: US-ALLERGAN-1712283US

PATIENT
  Age: 67 Year
  Sex: Female

DRUGS (3)
  1. TOBREX [Concomitant]
     Active Substance: TOBRAMYCIN
     Indication: EYE IRRITATION
     Dosage: UNK UNK, PRN
     Route: 047
     Dates: end: 20170323
  2. REFRESH TEARS [Suspect]
     Active Substance: CARBOXYMETHYLCELLULOSE SODIUM
     Indication: DRY EYE
     Dosage: UNK, QAM, QPM PRN
     Route: 047
  3. SIMILASAN FOR INFLAMMATION OF THE MOUTH AND THROAT [Concomitant]
     Active Substance: HOMEOPATHICS
     Indication: EYE IRRITATION
     Dosage: UNK UNK, PRN
     Route: 047

REACTIONS (5)
  - Retinal tear [Unknown]
  - Expired product administered [Unknown]
  - Conjunctivitis [Unknown]
  - Drug ineffective [Unknown]
  - Dry eye [Not Recovered/Not Resolved]

NARRATIVE: CASE EVENT DATE: 20170323
